FAERS Safety Report 10767587 (Version 2)
Quarter: 2015Q1

REPORT INFORMATION
  Report Type: Spontaneous
  Country: BR (occurrence: BR)
  Receive Date: 20150205
  Receipt Date: 20150309
  Transmission Date: 20150721
  Serious: No
  Sender: FDA-Public Use
  Company Number: BR-PFIZER INC-2015045119

PATIENT
  Sex: Female

DRUGS (3)
  1. EVANOR [Suspect]
     Active Substance: ETHINYL ESTRADIOL\LEVONORGESTREL
     Indication: MENSTRUAL CYCLE MANAGEMENT
     Dosage: 1 TABLET (UNSPECIFIED DOSE), DAILY
     Dates: start: 201408
  2. CEFALEXIN [Concomitant]
     Active Substance: CEPHALEXIN
     Dosage: 1 TABLET (UNSPECIFIED DATE), 4X/DAY (EVERY 6 HOURS)
  3. MORPHINE [Concomitant]
     Active Substance: MORPHINE

REACTIONS (1)
  - Drug ineffective [Recovered/Resolved]
